FAERS Safety Report 7768612-5 (Version None)
Quarter: 2011Q3

REPORT INFORMATION
  Report Type: 
  Country: None (occurrence: None)
  Receive Date: 20110922
  Receipt Date: 20110711
  Transmission Date: 20111222
  Serious: No
  Sender: FDA-Public Use
  Company Number: US-ASTRAZENECA-2011SE41408

PATIENT
  Age: 26 Year
  Sex: Male
  Weight: 108.9 kg

DRUGS (6)
  1. SEROQUEL [Suspect]
     Route: 048
  2. LAMICTAL [Concomitant]
  3. SEROQUEL [Suspect]
     Indication: BIPOLAR DISORDER
     Route: 048
     Dates: start: 20040101, end: 20070101
  4. SEROQUEL [Suspect]
     Route: 048
     Dates: start: 20080101, end: 20110101
  5. CLONAZEPAM [Concomitant]
  6. SEROQUEL [Suspect]
     Dosage: HS
     Route: 048
     Dates: start: 20070101, end: 20080101

REACTIONS (10)
  - RESTLESSNESS [None]
  - SOMNOLENCE [None]
  - MENTAL IMPAIRMENT [None]
  - MIDDLE INSOMNIA [None]
  - AMNESIA [None]
  - BACK INJURY [None]
  - DIZZINESS [None]
  - FALL [None]
  - FACE INJURY [None]
  - SOMNAMBULISM [None]
